FAERS Safety Report 17995335 (Version 2)
Quarter: 2020Q3

REPORT INFORMATION
  Report Type: Spontaneous
  Country: FR (occurrence: FR)
  Receive Date: 20200708
  Receipt Date: 20200713
  Transmission Date: 20201103
  Serious: Yes (Hospitalization, Other)
  Sender: FDA-Public Use
  Company Number: FR-BRISTOL-MYERS SQUIBB COMPANY-BMS-2020-053857

PATIENT
  Age: 82 Year
  Sex: Female
  Weight: 67.5 kg

DRUGS (2)
  1. LOVENOX [Suspect]
     Active Substance: ENOXAPARIN SODIUM
     Indication: DEEP VEIN THROMBOSIS
     Dosage: 12000 INTERNATIONAL UNIT, 1 DAY
     Route: 058
     Dates: start: 20200612, end: 20200620
  2. ELIQUIS [Suspect]
     Active Substance: APIXABAN
     Indication: DEEP VEIN THROMBOSIS
     Dosage: 20 MILLIGRAM, 1 DAY
     Route: 048
     Dates: start: 20200615, end: 20200620

REACTIONS (2)
  - Shock haemorrhagic [Recovering/Resolving]
  - Off label use [Unknown]

NARRATIVE: CASE EVENT DATE: 20200620
